FAERS Safety Report 25071740 (Version 2)
Quarter: 2025Q1

REPORT INFORMATION
  Report Type: Spontaneous
  Country: US (occurrence: US)
  Receive Date: 20250313
  Receipt Date: 20250325
  Transmission Date: 20250408
  Serious: No
  Sender: AMGEN
  Company Number: US-AMGEN-USASP2025046856

PATIENT
  Sex: Female

DRUGS (17)
  1. ENBREL [Suspect]
     Active Substance: ETANERCEPT
     Indication: Product used for unknown indication
     Route: 065
  2. ALBUTEROL SULFATE [Concomitant]
     Active Substance: ALBUTEROL SULFATE
  3. CYMBALTA [Concomitant]
     Active Substance: DULOXETINE HYDROCHLORIDE
  4. ESOMEPRAZOLE MAGNESIUM [Concomitant]
     Active Substance: ESOMEPRAZOLE MAGNESIUM
  5. FLUTICASONE PROPIONATE [Concomitant]
     Active Substance: FLUTICASONE PROPIONATE
  6. HYDROCORTISONE [Concomitant]
     Active Substance: HYDROCORTISONE
  7. LEFLUNOMIDE [Concomitant]
     Active Substance: LEFLUNOMIDE
  8. LEVOTHYROXINE [Concomitant]
     Active Substance: LEVOTHYROXINE
  9. LIDOCAINE [Concomitant]
     Active Substance: LIDOCAINE
  10. OXYCODONE AND ACETAMINOPHEN [Concomitant]
     Active Substance: ACETAMINOPHEN\OXYCODONE HYDROCHLORIDE
  11. PREGABALIN [Concomitant]
     Active Substance: PREGABALIN
  12. RECLAST [Concomitant]
     Active Substance: ZOLEDRONIC ACID
  13. RENFLEXIS [Concomitant]
     Active Substance: INFLIXIMAB-ABDA
  14. ROSUVASTATIN [Concomitant]
     Active Substance: ROSUVASTATIN
  15. SUMATRIPTAN [Concomitant]
     Active Substance: SUMATRIPTAN
  16. SYMBICORT [Concomitant]
     Active Substance: BUDESONIDE\FORMOTEROL FUMARATE DIHYDRATE
  17. TOPIRAMATE [Concomitant]
     Active Substance: TOPIRAMATE

REACTIONS (2)
  - Therapeutic product effect incomplete [Unknown]
  - Treatment failure [Unknown]
